FAERS Safety Report 19381118 (Version 10)
Quarter: 2022Q1

REPORT INFORMATION
  Report Type: Report from Study
  Country: US (occurrence: US)
  Receive Date: 20210607
  Receipt Date: 20220226
  Transmission Date: 20220423
  Serious: Yes (Hospitalization, Other)
  Sender: FDA-Public Use
  Company Number: US-NOVARTISPH-NVSC2021US127902

PATIENT
  Age: 51 Year
  Sex: Male

DRUGS (3)
  1. ENTRESTO [Suspect]
     Active Substance: SACUBITRIL\VALSARTAN
     Indication: Cardiac failure
     Dosage: UNK UNK, BID
     Route: 048
     Dates: start: 20210601
  2. METOPROLOL [Concomitant]
     Active Substance: METOPROLOL
     Indication: Product used for unknown indication
     Dosage: UNK
     Route: 065
  3. METOPROLOL [Concomitant]
     Active Substance: METOPROLOL
     Dosage: DOSE DOUBLED
     Route: 065

REACTIONS (9)
  - COVID-19 [Recovering/Resolving]
  - Myocardial infarction [Unknown]
  - Cardiac flutter [Not Recovered/Not Resolved]
  - Dyspnoea [Recovered/Resolved]
  - Weight decreased [Not Recovered/Not Resolved]
  - Weight increased [Unknown]
  - Anxiety [Recovered/Resolved]
  - Fatigue [Recovered/Resolved]
  - Hypotension [Not Recovered/Not Resolved]

NARRATIVE: CASE EVENT DATE: 20210601
